FAERS Safety Report 14620679 (Version 4)
Quarter: 2018Q3

REPORT INFORMATION
  Report Type: Spontaneous
  Country: CA (occurrence: CA)
  Receive Date: 20180309
  Receipt Date: 20180906
  Transmission Date: 20181010
  Serious: Yes (Hospitalization)
  Sender: FDA-Public Use
  Company Number: CA-ALLERGAN-1813042US

PATIENT
  Age: 66 Year
  Sex: Female

DRUGS (2)
  1. BOTOX [Suspect]
     Active Substance: ONABOTULINUMTOXINA
     Indication: MIGRAINE
     Dosage: 195 UNITS, SINGLE
     Route: 030
     Dates: start: 20180112, end: 20180112
  2. BOTOX [Suspect]
     Active Substance: ONABOTULINUMTOXINA
     Indication: PAIN

REACTIONS (3)
  - Head discomfort [Unknown]
  - Blood pressure increased [Recovered/Resolved]
  - Headache [Unknown]
